FAERS Safety Report 9215599 (Version 1)
Quarter: 2013Q2

REPORT INFORMATION
  Report Type: Spontaneous
  Country: US (occurrence: US)
  Receive Date: 20130408
  Receipt Date: 20130408
  Transmission Date: 20140414
  Serious: No
  Sender: FDA-Public Use
  Company Number: US-009507513-1303USA010251

PATIENT
  Sex: Female

DRUGS (1)
  1. NASONEX [Suspect]
     Indication: MIGRAINE PROPHYLAXIS
     Dosage: UNK
     Route: 045

REACTIONS (3)
  - Drug administration error [Unknown]
  - Migraine [Unknown]
  - Drug ineffective [Unknown]
